FAERS Safety Report 26126826 (Version 1)
Quarter: 2025Q4

REPORT INFORMATION
  Report Type: Spontaneous
  Country: US (occurrence: US)
  Receive Date: 20251205
  Receipt Date: 20251205
  Transmission Date: 20260117
  Serious: Yes (Other)
  Sender: NOVO NORDISK
  Company Number: US-NOVOPROD-1574434

PATIENT
  Age: 60 Year
  Sex: Male

DRUGS (4)
  1. NOVOLOG [Suspect]
     Active Substance: INSULIN ASPART
     Indication: Type 2 diabetes mellitus
     Dosage: 22-24 UNITS MORNING BEFORE DINNER.
     Route: 058
     Dates: start: 202207
  2. NOVOLOG [Suspect]
     Active Substance: INSULIN ASPART
     Dosage: 22-24 UNITS MORNING BEFORE DINNER.
     Route: 058
     Dates: start: 202207
  3. OZEMPIC [Suspect]
     Active Substance: SEMAGLUTIDE
     Indication: Type 2 diabetes mellitus
     Dosage: 1 MG, QW
     Route: 058
     Dates: start: 202206
  4. OZEMPIC [Suspect]
     Active Substance: SEMAGLUTIDE
     Dosage: 2 MG, QW
     Route: 058
     Dates: start: 202206

REACTIONS (4)
  - Corneal transplant [Recovered/Resolved]
  - Corneal transplant [Recovered/Resolved]
  - Cataract operation [Not Recovered/Not Resolved]
  - Corneal operation [Recovered/Resolved]

NARRATIVE: CASE EVENT DATE: 20240601
